FAERS Safety Report 7382409-X (Version None)
Quarter: 2011Q1

REPORT INFORMATION
  Report Type: 
  Country: None (occurrence: None)
  Receive Date: 20110329
  Receipt Date: 20110308
  Transmission Date: 20110831
  Serious: Yes (Hospitalization, Other)
  Sender: FDA-Public Use
  Company Number: US-BAYER-200941162NA

PATIENT
  Sex: Male
  Weight: 96.599 kg

DRUGS (33)
  1. PROTAMINE SULFATE [Concomitant]
     Dosage: UNK
     Route: 042
     Dates: start: 20050722
  2. EPINEPHRINE [Concomitant]
     Dosage: UNK
     Route: 042
     Dates: start: 20050722
  3. OMNIPAQUE 140 [Concomitant]
     Indication: CATHETERISATION CARDIAC
     Dosage: UNK
     Dates: start: 20031218
  4. OPTIRAY 350 [Concomitant]
     Indication: CATHETERISATION CARDIAC
     Dosage: UNK
     Dates: start: 20050221
  5. TRASYLOL [Suspect]
     Indication: CORONARY ARTERY BYPASS
     Dosage: UNK, APROTININ FULL DOSE PROTOCOL
     Route: 042
     Dates: start: 20050722, end: 20050722
  6. TRASYLOL [Suspect]
     Indication: AORTIC VALVE REPLACEMENT
  7. COREG [Concomitant]
     Dosage: 3.125 MG, DAILY
     Route: 048
  8. DIOVAN [Concomitant]
     Dosage: 160 MG, DAILY
     Route: 048
  9. INSULIN [Concomitant]
     Dosage: UNK
     Dates: start: 20050719
  10. TEMAZEPAM [Concomitant]
     Dosage: UNK
     Dates: start: 20050721
  11. LANOXIN [Concomitant]
     Dosage: 0.25 MG, DAILY
     Route: 048
  12. LIDOCAINE [Concomitant]
     Dosage: UNK,
     Route: 042
     Dates: start: 20050722
  13. ANCEF [Concomitant]
     Dosage: 1 G, UNK
     Route: 042
     Dates: start: 20050722
  14. ZESTRIL [Concomitant]
     Dosage: UNK
     Dates: start: 20030101
  15. ACETYLSALICYLIC ACID SRT [Concomitant]
     Dosage: 81 MG, DAILY
     Route: 048
     Dates: start: 20020101
  16. VYTORIN [Concomitant]
     Dosage: 10/40 MG/DAILY
     Route: 048
  17. LIPITOR [Concomitant]
  18. LEVOPHED [Concomitant]
     Dosage: UNK
     Dates: start: 20050722
  19. HEPARIN SODIUM [Concomitant]
     Dosage: UNK, IV AND VESSEL FLUSH
     Route: 042
     Dates: start: 20050722
  20. PAPAVERINE [Concomitant]
     Dosage: UNK, VESSEL FLUSH
     Dates: start: 20050722
  21. PLAVIX [Concomitant]
     Dosage: 75 MG, DAILY
  22. PRIMACOR [Concomitant]
     Dosage: UNK
     Route: 042
     Dates: start: 20050722
  23. PROPOFOL [Concomitant]
     Dosage: UNK
     Route: 042
     Dates: start: 20050722
  24. ISOVUE-128 [Concomitant]
     Indication: CATHETERISATION CARDIAC
     Dosage: UNK,
     Dates: start: 19960725
  25. VERAPAMIL [Concomitant]
     Dosage: UNK, VESSEL FLUSH
     Dates: start: 20050722
  26. LISINOPRIL [Concomitant]
     Dosage: UNK
     Dates: start: 20030101
  27. ATORVASTATIN CALCIUM [Concomitant]
     Dosage: UNK
     Dates: start: 20050718
  28. GLUCOPHAGE [Concomitant]
     Dosage: 500 MG, DAILY
     Route: 048
  29. GLUCOTROL XL [Concomitant]
     Dosage: 10 MG/TWICE A DAY
     Route: 048
  30. LEXAPRO [Concomitant]
     Dosage: 10 MG, DAILY
     Route: 048
  31. ZETIA [Concomitant]
     Dosage: 10 MG, DAILY
     Route: 048
  32. LABETALOL HCL [Concomitant]
     Dosage: 20 MG, TWICE A DAY
     Route: 048
  33. SENSORCAINE-MPF [BUPIVACAINE HYDROCHLORIDE] [Concomitant]
     Dosage: UNK, PAIN PUMP
     Dates: start: 20050722

REACTIONS (11)
  - FEAR [None]
  - RENAL IMPAIRMENT [None]
  - RENAL FAILURE [None]
  - EMOTIONAL DISTRESS [None]
  - STRESS [None]
  - INJURY [None]
  - ANHEDONIA [None]
  - ANXIETY [None]
  - RENAL INJURY [None]
  - UNEVALUABLE EVENT [None]
  - PAIN [None]
